FAERS Safety Report 17796605 (Version 1)
Quarter: 2020Q2

REPORT INFORMATION
  Report Type: Report from Study
  Country: CA (occurrence: CA)
  Receive Date: 20200518
  Receipt Date: 20200518
  Transmission Date: 20200714
  Serious: Yes (Other)
  Sender: FDA-Public Use
  Company Number: CA-ROCHE-2580269

PATIENT
  Age: 26 Year
  Sex: Female
  Weight: 129 kg

DRUGS (7)
  1. QUETIAPINE. [Concomitant]
     Active Substance: QUETIAPINE
  2. ANAKINRA [Concomitant]
     Active Substance: ANAKINRA
  3. CALCIUM [Concomitant]
     Active Substance: CALCIUM
  4. PANTOLOC [PANTOPRAZOLE] [Concomitant]
     Active Substance: PANTOPRAZOLE SODIUM
  5. ACTEMRA [Suspect]
     Active Substance: TOCILIZUMAB
     Indication: STILL^S DISEASE
     Dosage: ONGOING
     Route: 042
     Dates: start: 20200304
  6. MEDROL [Concomitant]
     Active Substance: METHYLPREDNISOLONE
  7. TYLENOL [Concomitant]
     Active Substance: ACETAMINOPHEN

REACTIONS (3)
  - Weight increased [Unknown]
  - Poor venous access [Unknown]
  - Weight decreased [Recovered/Resolved]

NARRATIVE: CASE EVENT DATE: 20200403
